FAERS Safety Report 8941008 (Version 2)
Quarter: 2013Q1

REPORT INFORMATION
  Report Type: Spontaneous
  Country: DK (occurrence: CA)
  Receive Date: 20121203
  Receipt Date: 20130222
  Transmission Date: 20140127
  Serious: Yes (Other)
  Sender: FDA-Public Use
  Company Number: CA-FRI-1000040710

PATIENT
  Sex: Female

DRUGS (3)
  1. CELEXA [Suspect]
     Indication: DEPRESSION
     Dosage: 20 MG
     Dates: start: 20040317
  2. CELEXA [Suspect]
     Indication: SUICIDAL IDEATION
  3. BIRTH CONTROL [Concomitant]
     Indication: CONTRACEPTION

REACTIONS (2)
  - Intentional self-injury [Unknown]
  - Off label use [Unknown]
